FAERS Safety Report 4318594-3 (Version None)
Quarter: 2004Q1

REPORT INFORMATION
  Report Type: 
  Country: None (occurrence: None)
  Receive Date: 20040315
  Receipt Date: 20040305
  Transmission Date: 20041129
  Serious: Yes (Other)
  Sender: FDA-Public Use
  Company Number: 200410729GDS

PATIENT
  Age: 40 Year
  Sex: Female

DRUGS (2)
  1. CIPROFLOXACIN [Suspect]
     Indication: EAR INFECTION
     Dosage: 500 MG, BID, ORAL
     Route: 048
     Dates: start: 20031028, end: 20031101
  2. CIPROFLOXACIN [Suspect]
     Indication: RHINOLARYNGITIS
     Dosage: 500 MG, BID, ORAL
     Route: 048
     Dates: start: 20031028, end: 20031101

REACTIONS (3)
  - ABORTION SPONTANEOUS [None]
  - COMPLICATIONS OF MATERNAL EXPOSURE TO THERAPEUTIC DRUGS [None]
  - MATERNAL DRUGS AFFECTING FOETUS [None]
